FAERS Safety Report 8199583-8 (Version None)
Quarter: 2012Q1

REPORT INFORMATION
  Report Type: 
  Country: None (occurrence: None)
  Receive Date: 20120310
  Receipt Date: 20120227
  Transmission Date: 20120608
  Serious: Yes (Death, Other)
  Sender: FDA-Public Use
  Company Number: DE-BRISTOL-MYERS SQUIBB COMPANY-16445108

PATIENT
  Age: 69 Year
  Sex: Male

DRUGS (6)
  1. MYCOPHENOLATE MOFETIL [Suspect]
     Indication: ACUTE MYELOID LEUKAEMIA
  2. CYCLOSPORINE [Suspect]
     Indication: ACUTE MYELOID LEUKAEMIA
  3. CYCLOPHOSPHAMIDE [Suspect]
     Indication: ACUTE MYELOID LEUKAEMIA
  4. CLOFARABINE [Suspect]
     Indication: ACUTE MYELOID LEUKAEMIA
  5. ANTI-THYMOCYTE GLOBULIN NOS [Suspect]
     Indication: ACUTE MYELOID LEUKAEMIA
  6. CYTARABINE [Suspect]
     Indication: ACUTE MYELOID LEUKAEMIA

REACTIONS (10)
  - SKIN TOXICITY [None]
  - OEDEMA [None]
  - MULTI-ORGAN FAILURE [None]
  - PYREXIA [None]
  - MUCOSAL INFLAMMATION [None]
  - SEPSIS [None]
  - TRANSAMINASES INCREASED [None]
  - BLOOD BILIRUBIN INCREASED [None]
  - APLASIA [None]
  - VENOUS OCCLUSION [None]
